FAERS Safety Report 6260233-9 (Version None)
Quarter: 2009Q3

REPORT INFORMATION
  Report Type: 
  Country: None (occurrence: None)
  Receive Date: 20090708
  Receipt Date: 20090702
  Transmission Date: 20100115
  Serious: Yes (Hospitalization, Other)
  Sender: FDA-Public Use
  Company Number: US-ASTRAZENECA-2007UW02389

PATIENT
  Age: 20020 Day
  Sex: Male
  Weight: 90.7 kg

DRUGS (5)
  1. SEROQUEL [Suspect]
     Indication: BIPOLAR DISORDER
     Route: 048
     Dates: start: 20010828, end: 20050601
  2. GEODON [Concomitant]
     Dates: start: 20050201, end: 20050601
  3. ABILIFY [Concomitant]
     Dates: start: 20050601, end: 20050701
  4. DEPAKOTE [Concomitant]
     Dates: start: 20010601, end: 20010701
  5. RISPERDAL [Concomitant]

REACTIONS (38)
  - ADVERSE DRUG REACTION [None]
  - AMNESIA [None]
  - BLOOD CHOLESTEROL INCREASED [None]
  - CARDIOVASCULAR DISORDER [None]
  - CEREBROVASCULAR ACCIDENT [None]
  - CHEST PAIN [None]
  - CHOLELITHIASIS [None]
  - CONFUSIONAL STATE [None]
  - CRANIAL NERVE DISORDER [None]
  - DEHYDRATION [None]
  - DEPRESSION [None]
  - DYSARTHRIA [None]
  - DYSURIA [None]
  - EJACULATION DISORDER [None]
  - FACIAL PALSY [None]
  - GASTROOESOPHAGEAL REFLUX DISEASE [None]
  - HYPERSENSITIVITY [None]
  - HYPOAESTHESIA FACIAL [None]
  - HYPOGLYCAEMIA [None]
  - LUNG NEOPLASM [None]
  - LYMPHADENOPATHY [None]
  - NEOPLASM PROSTATE [None]
  - OSTEOARTHRITIS [None]
  - PAIN IN EXTREMITY [None]
  - PARAESTHESIA [None]
  - PEPTIC ULCER [None]
  - PROSTATIC DISORDER [None]
  - RASH [None]
  - SALIVARY GLAND CALCULUS [None]
  - SKIN CANDIDA [None]
  - SKIN LESION [None]
  - SLEEP DISORDER [None]
  - SPEECH DISORDER [None]
  - TESTICULAR PAIN [None]
  - TYPE 2 DIABETES MELLITUS [None]
  - UMBILICAL HERNIA [None]
  - URINARY TRACT INFECTION [None]
  - VOMITING [None]
